FAERS Safety Report 6229072-9 (Version None)
Quarter: 2009Q2

REPORT INFORMATION
  Report Type: 
  Country: None (occurrence: None)
  Receive Date: 20090615
  Receipt Date: 20090605
  Transmission Date: 20091009
  Serious: Yes (Other)
  Sender: FDA-Public Use
  Company Number: DK-BIOGENIDEC-2009BI011700

PATIENT
  Age: 63 Year
  Sex: Male

DRUGS (4)
  1. TYSABRI [Suspect]
     Indication: MULTIPLE SCLEROSIS
     Route: 042
     Dates: start: 20070515, end: 20090107
  2. NSAIDS [Concomitant]
  3. ANTIBIOTIC [Concomitant]
  4. COPAXONE [Concomitant]
     Route: 058

REACTIONS (1)
  - MALIGNANT MELANOMA [None]
